FAERS Safety Report 6783814-2 (Version None)
Quarter: 2010Q2

REPORT INFORMATION
  Report Type: 
  Country: None (occurrence: None)
  Receive Date: 20100622
  Receipt Date: 20100520
  Transmission Date: 20101027
  Serious: Yes (Hospitalization)
  Sender: FDA-Public Use
  Company Number: CH-BAYER-201025816GPV

PATIENT
  Age: 78 Year
  Sex: Female

DRUGS (6)
  1. ADALAT [Suspect]
     Indication: DRUG USE FOR UNKNOWN INDICATION
     Route: 048
     Dates: start: 20090815
  2. PROGRAF [Suspect]
     Indication: RENAL TRANSPLANT
     Route: 048
     Dates: start: 20090815, end: 20100215
  3. CYCLOSPORINE [Suspect]
     Indication: RENAL TRANSPLANT
     Route: 048
     Dates: start: 20100215
  4. PREDNISONE TAB [Suspect]
     Indication: RENAL TRANSPLANT
     Route: 048
     Dates: start: 20090815
  5. IMUREK [Concomitant]
     Indication: RENAL TRANSPLANT
     Route: 048
     Dates: start: 20090815, end: 20091115
  6. METOPROLOL TARTRATE [Concomitant]
     Dosage: UNIT DOSE: 200 MG
     Route: 048

REACTIONS (2)
  - AGRANULOCYTOSIS [None]
  - BONE MARROW FAILURE [None]
